FAERS Safety Report 6712211-0 (Version None)
Quarter: 2010Q2

REPORT INFORMATION
  Report Type: 
  Country: None (occurrence: None)
  Receive Date: 20100505
  Receipt Date: 20100428
  Transmission Date: 20101027
  Serious: Yes (Other)
  Sender: FDA-Public Use
  Company Number: US-ABBOTT-10P-163-0641651-00

PATIENT
  Sex: Female
  Weight: 99.88 kg

DRUGS (2)
  1. SYNTHROID [Suspect]
     Indication: THYROIDECTOMY
     Dosage: UNKNOWN
     Dates: start: 20080101
  2. CYTOMEL [Suspect]
     Indication: DRUG USE FOR UNKNOWN INDICATION

REACTIONS (9)
  - ABDOMINAL DISCOMFORT [None]
  - APPENDICECTOMY [None]
  - CHILLS [None]
  - CORONARY ARTERY DISEASE [None]
  - DIVERTICULITIS [None]
  - LYMPHADENOPATHY [None]
  - MALAISE [None]
  - NAUSEA [None]
  - SARCOIDOSIS [None]
